FAERS Safety Report 8785380 (Version 3)
Quarter: 2013Q3

REPORT INFORMATION
  Report Type: Report from Study
  Country: JP (occurrence: JP)
  Receive Date: 20120914
  Receipt Date: 20130730
  Transmission Date: 20140515
  Serious: Yes (Other)
  Sender: FDA-Public Use
  Company Number: JP-VERTEX PHARMACEUTICAL INC.-AE-2012-004975

PATIENT
  Age: 55 Year
  Sex: Male

DRUGS (20)
  1. VX-950 (TELAPREVIR) [Suspect]
     Indication: CHRONIC HEPATITIS C
     Dosage: 2250 MG, QD
     Route: 048
     Dates: start: 20120217, end: 20120511
  2. RIBAVIRIN [Suspect]
     Indication: CHRONIC HEPATITIS C
     Dosage: 800 MG, QD
     Route: 048
     Dates: start: 20120217, end: 20120413
  3. RIBAVIRIN [Suspect]
     Dosage: 600 MG, QD
     Route: 048
     Dates: start: 20120414, end: 20120503
  4. RIBAVIRIN [Suspect]
     Dosage: 400 MG, QD
     Route: 048
     Dates: start: 20120504, end: 20120511
  5. RIBAVIRIN [Suspect]
     Dosage: 200 MG, QD
     Route: 048
     Dates: start: 20120512, end: 20120517
  6. RIBAVIRIN [Suspect]
     Dosage: 300 MG, QD
     Route: 048
     Dates: start: 20120518, end: 20120531
  7. RIBAVIRIN [Suspect]
     Dosage: 600 MG, QD
     Route: 048
     Dates: start: 20120601, end: 20120705
  8. RIBAVIRIN [Suspect]
     Dosage: 800 MG, QD
     Route: 048
     Dates: start: 20120706, end: 20120713
  9. RIBAVIRIN [Suspect]
     Dosage: 600 MG, QD
     Route: 048
     Dates: start: 20120714, end: 20120803
  10. PEGINTERFERON ALFA-2B [Suspect]
     Indication: CHRONIC HEPATITIS C
     Dosage: 1.5 ?G/KG, QW
     Route: 058
     Dates: start: 20120217, end: 20120727
  11. CONFATANIN [Concomitant]
     Dosage: 60 MG, PRN
     Route: 048
     Dates: start: 20120217, end: 20120217
  12. BETANIS [Concomitant]
     Dosage: 50 MG, QD
     Route: 048
     Dates: start: 20120221, end: 20120305
  13. RHYTHMY [Concomitant]
     Dosage: 2 MG, QD
     Route: 048
     Dates: start: 20120229, end: 20120302
  14. BAYASPIRIN [Concomitant]
     Dosage: 100 MG, QD
     Route: 048
  15. OMERAP [Concomitant]
     Dosage: 20 MG, QD
     Route: 048
  16. EPADEL-S [Concomitant]
     Dosage: 1200 MG, QD
     Route: 048
  17. POSTERISAN [Concomitant]
     Dosage: UNK
     Route: 051
     Dates: start: 20120413
  18. MUCOSTA [Concomitant]
     Dosage: 300 MG, QD
     Route: 048
     Dates: start: 20120427, end: 20120504
  19. LOXONIN [Concomitant]
     Dosage: 180 MG, QD
     Route: 048
     Dates: start: 20120427, end: 20120504
  20. MYSLEE [Concomitant]
     Dosage: 10 MG, QD
     Route: 048
     Dates: start: 20120629

REACTIONS (1)
  - Loss of consciousness [Recovered/Resolved]
